FAERS Safety Report 23720739 (Version 1)
Quarter: 2024Q2

REPORT INFORMATION
  Report Type: Spontaneous
  Country: US (occurrence: US)
  Receive Date: 20240409
  Receipt Date: 20240409
  Transmission Date: 20240715
  Serious: No
  Sender: FDA-Public Use
  Company Number: US-Merck Healthcare KGaA-2024018633

PATIENT
  Sex: Female
  Weight: 76 kg

DRUGS (2)
  1. MAVENCLAD [Suspect]
     Active Substance: CLADRIBINE
     Indication: Multiple sclerosis
     Dosage: YEAR ONE MONTH ONE THERAPY. 2 TABLETS ON DAYS 1 AND 2 AND 1 TABLET ON DAYS 3 TO 5.
     Route: 048
     Dates: start: 20230404
  2. MAVENCLAD [Suspect]
     Active Substance: CLADRIBINE
     Dosage: YEAR ONE MONTH TWO THERAPY.
     Route: 048

REACTIONS (1)
  - Malaise [Unknown]
